FAERS Safety Report 17104630 (Version 1)
Quarter: 2019Q4

REPORT INFORMATION
  Report Type: Spontaneous
  Country: US (occurrence: US)
  Receive Date: 20191107
  Receipt Date: 20191107
  Transmission Date: 20200122
  Serious: No
  Sender: FDA-Public Use
  Company Number: None

PATIENT
  Age: 72 Year
  Sex: Female
  Weight: 72.57 kg

DRUGS (13)
  1. AMBIEN [Concomitant]
     Active Substance: ZOLPIDEM TARTRATE
  2. CHLOESTACARE [Concomitant]
  3. PEPPERMINT. [Concomitant]
     Active Substance: PEPPERMINT
  4. MULTI WOMEN VIT. 55+ [Concomitant]
  5. VARICARE [Concomitant]
  6. REMIFEMIN [Concomitant]
     Active Substance: BLACK COHOSH
  7. ALEVE [Concomitant]
     Active Substance: NAPROXEN SODIUM
  8. CHANTIX [Suspect]
     Active Substance: VARENICLINE TARTRATE
     Dosage: ?          QUANTITY:1 DF DOSAGE FORM;?
     Route: 048
     Dates: start: 20190718, end: 20190728
  9. MAGNESIUM [Concomitant]
     Active Substance: MAGNESIUM
  10. LAVENDER [Concomitant]
     Active Substance: ALCOHOL
  11. PROBIOTICS [Concomitant]
     Active Substance: PROBIOTICS NOS
  12. TEA TREE OIL. [Concomitant]
     Active Substance: TEA TREE OIL
  13. TYLENOL [Concomitant]
     Active Substance: ACETAMINOPHEN

REACTIONS (9)
  - Vomiting [None]
  - Ageusia [None]
  - Temperature intolerance [None]
  - Mental impairment [None]
  - Constipation [None]
  - Amnesia [None]
  - Dizziness [None]
  - Disturbance in attention [None]
  - Anxiety [None]

NARRATIVE: CASE EVENT DATE: 20190723
